FAERS Safety Report 7815925-4 (Version None)
Quarter: 2011Q4

REPORT INFORMATION
  Report Type: 
  Country: None (occurrence: None)
  Receive Date: 20111014
  Receipt Date: 20111012
  Transmission Date: 20120403
  Serious: Yes (Hospitalization)
  Sender: FDA-Public Use
  Company Number: US-ABBOTT-11P-163-0840310-00

PATIENT
  Sex: Female
  Weight: 69.008 kg

DRUGS (1)
  1. NIASPAN [Suspect]
     Indication: PRODUCT USED FOR UNKNOWN INDICATION
     Dosage: 500 MG AT BEDTIME
     Dates: start: 20081031

REACTIONS (3)
  - RESPIRATORY DISORDER [None]
  - SKIN ULCER [None]
  - WOUND [None]
